FAERS Safety Report 4523371-4 (Version None)
Quarter: 2004Q4

REPORT INFORMATION
  Report Type: 
  Country: None (occurrence: None)
  Receive Date: 20041208
  Receipt Date: 20041208
  Transmission Date: 20050328
  Serious: Yes (Hospitalization)
  Sender: FDA-Public Use
  Company Number: None

PATIENT
  Age: 62 Year
  Sex: Male
  Weight: 75.2971 kg

DRUGS (6)
  1. IRESSA [Suspect]
     Indication: OESOPHAGEAL CARCINOMA
     Dosage: 250MG ONCE DAILY ORALLY
     Route: 048
     Dates: start: 20040729, end: 20041127
  2. CISPLATIN [Suspect]
     Indication: OESOPHAGEAL CARCINOMA
     Dosage: 75MG/M2
     Dates: start: 20040816, end: 20041127
  3. FLUOROURACIL [Suspect]
     Indication: OESOPHAGEAL CARCINOMA
     Dosage: 100MG/M2  IV
     Route: 042
     Dates: start: 20040816, end: 20041127
  4. PROTONIX [Concomitant]
  5. NORVASC [Concomitant]
  6. TYLENOL (CAPLET) [Concomitant]

REACTIONS (3)
  - BACTERAEMIA [None]
  - CATHETER SEPSIS [None]
  - STAPHYLOCOCCAL INFECTION [None]
